FAERS Safety Report 18202612 (Version 1)
Quarter: 2020Q3

REPORT INFORMATION
  Report Type: Spontaneous
  Country: CN (occurrence: CN)
  Receive Date: 20200827
  Receipt Date: 20200827
  Transmission Date: 20201103
  Serious: Yes (Death, Life-Threatening, Other)
  Sender: FDA-Public Use
  Company Number: CN-009507513-2008CHN012043

PATIENT
  Age: 35 Year
  Sex: Male
  Weight: 62 kg

DRUGS (2)
  1. KEYTRUDA [Suspect]
     Active Substance: PEMBROLIZUMAB
     Indication: NON-SMALL CELL LUNG CANCER
     Dosage: 200 MG, QD
     Route: 041
     Dates: start: 20200121, end: 20200122
  2. ANLOTINIB HYDROCHLORIDE [Concomitant]
     Indication: NON-SMALL CELL LUNG CANCER
     Dosage: 12 MILLIGRAM, BID
     Route: 041
     Dates: start: 20200121, end: 20200225

REACTIONS (7)
  - Pneumonia [Unknown]
  - Traumatic lung injury [Not Recovered/Not Resolved]
  - Ill-defined disorder [Unknown]
  - Malignant neoplasm progression [Fatal]
  - Tracheal cancer [Fatal]
  - Inappropriate schedule of product administration [Unknown]
  - Shock [Unknown]

NARRATIVE: CASE EVENT DATE: 2020
